FAERS Safety Report 4967167-8 (Version None)
Quarter: 2006Q2

REPORT INFORMATION
  Report Type: 
  Country: None (occurrence: None)
  Receive Date: 20060404
  Receipt Date: 20060327
  Transmission Date: 20061013
  Serious: Yes (Death, Life-Threatening, Hospitalization)
  Sender: FDA-Public Use
  Company Number: MC200600189

PATIENT
  Age: 60 Year
  Sex: Male
  Weight: 75 kg

DRUGS (2)
  1. ANGIOMAX [Suspect]
     Indication: ANTIPLATELET THERAPY
     Dosage: SEE IMAGE
     Route: 040
     Dates: start: 20060306, end: 20060306
  2. ANGIOMAX [Suspect]
     Indication: ANTIPLATELET THERAPY
     Dosage: SEE IMAGE
     Route: 040
     Dates: start: 20060306

REACTIONS (5)
  - ACUTE MYOCARDIAL INFARCTION [None]
  - CARDIAC ARREST [None]
  - CARDIAC PROCEDURE COMPLICATION [None]
  - CORONARY ARTERY THROMBOSIS [None]
  - RESPIRATORY ARREST [None]
